FAERS Safety Report 5949439-3 (Version None)
Quarter: 2008Q4

REPORT INFORMATION
  Report Type: 
  Country: None (occurrence: None)
  Receive Date: 20081112
  Receipt Date: 20081103
  Transmission Date: 20090506
  Serious: Yes (Other)
  Sender: FDA-Public Use
  Company Number: PHHY2008FR26948

PATIENT
  Sex: Male

DRUGS (1)
  1. VOLTAREN [Suspect]
     Indication: SPINAL DISORDER
     Dosage: 50 MG, UNK

REACTIONS (3)
  - BIOPSY KIDNEY [None]
  - GLOMERULONEPHRITIS [None]
  - PROTEINURIA [None]
